FAERS Safety Report 17740545 (Version 1)
Quarter: 2020Q2

REPORT INFORMATION
  Report Type: Spontaneous
  Country: US (occurrence: US)
  Receive Date: 20200502
  Receipt Date: 20200502
  Transmission Date: 20200714
  Serious: No
  Sender: FDA-Public Use
  Company Number: None

PATIENT
  Age: 35 Year
  Sex: Female

DRUGS (1)
  1. COSENTYX [Suspect]
     Active Substance: SECUKINUMAB
     Indication: MYOCARDITIS
     Dosage: OTHER
     Route: 058
     Dates: start: 201907

REACTIONS (4)
  - Ulcer [None]
  - Drug ineffective [None]
  - Muscle tightness [None]
  - Pain in extremity [None]

NARRATIVE: CASE EVENT DATE: 20200413
